FAERS Safety Report 7114649-9 (Version None)
Quarter: 2010Q4

REPORT INFORMATION
  Report Type: 
  Country: None (occurrence: None)
  Receive Date: 20101122
  Receipt Date: 20101111
  Transmission Date: 20110411
  Serious: Yes (Hospitalization)
  Sender: FDA-Public Use
  Company Number: GB-BIOGENIDEC-2010BI032050

PATIENT
  Age: 48 Year
  Sex: Female

DRUGS (5)
  1. TYSABRI [Suspect]
     Indication: PRODUCT USED FOR UNKNOWN INDICATION
     Dates: start: 20081101
  2. GABAPENTIN [Concomitant]
  3. BACLOFEN [Concomitant]
  4. BENDROFLUMETHIAZOLE [Concomitant]
  5. CANDESARTAN CILEXETIL [Concomitant]

REACTIONS (2)
  - MENINGIOMA [None]
  - MULTIPLE SCLEROSIS RELAPSE [None]
